FAERS Safety Report 14534699 (Version 2)
Quarter: 2018Q1

REPORT INFORMATION
  Report Type: Spontaneous
  Country: JP (occurrence: JP)
  Receive Date: 20180215
  Receipt Date: 20180307
  Transmission Date: 20180509
  Serious: Yes (Other)
  Sender: FDA-Public Use
  Company Number: JP-ELI_LILLY_AND_COMPANY-JP201802005024

PATIENT
  Age: 64 Year
  Sex: Female

DRUGS (2)
  1. EVISTA [Suspect]
     Active Substance: RALOXIFENE HYDROCHLORIDE
     Indication: OSTEOPOROSIS
     Dosage: 60 MG, DAILY
     Route: 048
  2. LOXOPROFEN [Concomitant]
     Active Substance: LOXOPROFEN
     Dosage: 100 MG, DAILY
     Route: 062

REACTIONS (1)
  - Breast cancer [Unknown]
